FAERS Safety Report 8697791 (Version 5)
Quarter: 2016Q2

REPORT INFORMATION
  Report Type: Spontaneous
  Country: US (occurrence: US)
  Receive Date: 20120801
  Receipt Date: 20160527
  Transmission Date: 20160815
  Serious: Yes (Hospitalization, Disabling, Other)
  Sender: FDA-Public Use
  Company Number: US-ASTRAZENECA-2012SE53037

PATIENT
  Age: 539 Month
  Sex: Male
  Weight: 187.8 kg

DRUGS (59)
  1. CRESTOR [Suspect]
     Active Substance: ROSUVASTATIN CALCIUM
     Indication: BLOOD CHOLESTEROL INCREASED
     Route: 048
     Dates: start: 20100903
  2. CARVEDILOL. [Concomitant]
     Active Substance: CARVEDILOL
     Dates: start: 2015
  3. MINOXIDIL. [Concomitant]
     Active Substance: MINOXIDIL
     Dosage: 2.5MG UNKNOWN
     Dates: start: 20070110
  4. SONATA [Concomitant]
     Active Substance: ZALEPLON
     Dosage: 10.0MG UNKNOWN
     Dates: start: 20040119
  5. ALLOPURINOL. [Concomitant]
     Active Substance: ALLOPURINOL
     Dosage: 300.0MG UNKNOWN
     Route: 048
     Dates: start: 20040426
  6. LOTREL [Concomitant]
     Active Substance: AMLODIPINE BESYLATE\BENAZEPRIL HYDROCHLORIDE
     Dosage: 5-20 MG
     Dates: start: 20060119
  7. HYDROCHLOROTHIAZIDE. [Concomitant]
     Active Substance: HYDROCHLOROTHIAZIDE
     Dosage: 25.0MG UNKNOWN
     Dates: start: 20061012
  8. CEPHALEXIN. [Concomitant]
     Active Substance: CEPHALEXIN
     Dosage: 500.0MG UNKNOWN
     Dates: start: 20120308
  9. LORATADINE. [Concomitant]
     Active Substance: LORATADINE
     Route: 048
     Dates: start: 20050419
  10. TERBINAFINE. [Concomitant]
     Active Substance: TERBINAFINE
     Dosage: 250.0MG UNKNOWN
     Dates: start: 20151013
  11. DOCUSATE SODIUM. [Concomitant]
     Active Substance: DOCUSATE SODIUM
     Dosage: 25.0MG UNKNOWN
     Dates: start: 20090119
  12. COZAAR [Concomitant]
     Active Substance: LOSARTAN POTASSIUM
     Route: 048
     Dates: start: 20090221
  13. BROMOCRYPTINE MESYLATE [Concomitant]
     Dosage: 2.5MG UNKNOWN
     Dates: start: 20090917
  14. EFFIENT [Concomitant]
     Active Substance: PRASUGREL HYDROCHLORIDE
     Dosage: 10.0MG UNKNOWN
     Dates: start: 20151105
  15. LEVOFLOXACIN. [Concomitant]
     Active Substance: LEVOFLOXACIN
     Dosage: 500.0MG UNKNOWN
     Dates: start: 20140216
  16. NIFEDIPINE. [Concomitant]
     Active Substance: NIFEDIPINE
     Route: 048
     Dates: start: 20090221
  17. RENAGEL/RENVELA [Concomitant]
     Route: 048
     Dates: start: 20090221
  18. INDOMETHACIN. [Concomitant]
     Active Substance: INDOMETHACIN
     Route: 048
     Dates: start: 20051227
  19. ACETAMINOPHENE [Concomitant]
     Route: 048
     Dates: start: 20091110
  20. FOLIC ACID. [Concomitant]
     Active Substance: FOLIC ACID
     Dosage: 1.0MG UNKNOWN
     Dates: start: 20131021
  21. HYDROXYZINE HCL [Concomitant]
     Active Substance: HYDROXYZINE HYDROCHLORIDE
     Dosage: 25.0MG UNKNOWN
     Dates: start: 20140618
  22. CRESTOR [Suspect]
     Active Substance: ROSUVASTATIN CALCIUM
     Indication: BLOOD CHOLESTEROL INCREASED
     Route: 048
     Dates: start: 2005
  23. SIMVASTATIN. [Concomitant]
     Active Substance: SIMVASTATIN
     Route: 048
     Dates: start: 20091229
  24. CLARINEX [Concomitant]
     Active Substance: DESLORATADINE
     Dosage: 5.0MG UNKNOWN
     Route: 048
     Dates: start: 20040512
  25. HECTOROL [Concomitant]
     Active Substance: DOXERCALCIFEROL
     Dosage: 0.0030MG UNKNOWN
     Dates: start: 20080908
  26. AZITHROMYCIN ANHYDROUS. [Concomitant]
     Active Substance: AZITHROMYCIN ANHYDROUS
     Dosage: 200.0MG UNKNOWN
     Dates: start: 20140105
  27. FLUTICASONE PROPIONATE. [Concomitant]
     Active Substance: FLUTICASONE PROPIONATE
     Route: 048
     Dates: start: 20120409
  28. FUROSEMIDE. [Concomitant]
     Active Substance: FUROSEMIDE
     Dosage: 20.0MG UNKNOWN
     Dates: start: 20040716
  29. ALBUTEROL SULFATE/PROAIR [Concomitant]
     Dosage: 4.0MG UNKNOWN
     Dates: start: 20040901
  30. ZETIA [Concomitant]
     Active Substance: EZETIMIBE
     Dosage: 10.0MG UNKNOWN
     Dates: start: 20120824
  31. TRAZODONE HYDROCHLORIDE. [Concomitant]
     Active Substance: TRAZODONE HYDROCHLORIDE
     Dosage: 50.0MG UNKNOWN
     Dates: start: 20131127
  32. GABAPENTIN. [Concomitant]
     Active Substance: GABAPENTIN
     Route: 048
     Dates: start: 20140828
  33. CRESTOR [Suspect]
     Active Substance: ROSUVASTATIN CALCIUM
     Indication: BLOOD CHOLESTEROL INCREASED
     Dosage: 5.0MG UNKNOWN
     Route: 048
     Dates: start: 20120829
  34. OMEPRAZOLE. [Concomitant]
     Active Substance: OMEPRAZOLE
     Route: 048
     Dates: start: 20121117
  35. NEXIUM [Concomitant]
     Active Substance: ESOMEPRAZOLE MAGNESIUM
     Route: 048
     Dates: start: 20120403
  36. TOPROL XL [Concomitant]
     Active Substance: METOPROLOL SUCCINATE
     Dosage: 50.0MG UNKNOWN
     Dates: start: 20031125
  37. CELEBREX [Concomitant]
     Active Substance: CELECOXIB
     Route: 048
     Dates: start: 20031006
  38. VICODIN [Concomitant]
     Active Substance: ACETAMINOPHEN\HYDROCODONE BITARTRATE
     Dosage: 7.5-750 MG
     Route: 048
     Dates: start: 20051012
  39. IBUPROFEN. [Concomitant]
     Active Substance: IBUPROFEN
     Dosage: 400.0MG UNKNOWN
     Dates: start: 20050225
  40. FOSRENOL [Concomitant]
     Active Substance: LANTHANUM CARBONATE
     Route: 048
     Dates: start: 20090121
  41. URSODIOL. [Concomitant]
     Active Substance: URSODIOL
     Dosage: 500.0MG UNKNOWN
     Dates: start: 20120607
  42. ERGOCALCIFEROL. [Concomitant]
     Active Substance: ERGOCALCIFEROL
     Dosage: 50000.0IU UNKNOWN
     Dates: start: 20120829
  43. ZOLPIDEM TARTRATE. [Concomitant]
     Active Substance: ZOLPIDEM TARTRATE
     Dosage: 5.0MG UNKNOWN
     Dates: start: 20160109
  44. CLONIDINE. [Concomitant]
     Active Substance: CLONIDINE
     Route: 048
     Dates: start: 20140729
  45. TRAMADOL HCL [Concomitant]
     Active Substance: TRAMADOL HYDROCHLORIDE
     Dosage: 50.0MG UNKNOWN
     Route: 048
     Dates: start: 20091224
  46. COLCHICINE. [Concomitant]
     Active Substance: COLCHICINE
     Dosage: 6.5MG UNKNOWN
     Dates: start: 20050621
  47. LIPITOR [Concomitant]
     Active Substance: ATORVASTATIN CALCIUM
     Dosage: 20.0MG UNKNOWN
     Route: 048
     Dates: start: 20040308
  48. AMIDRINE [Concomitant]
     Dosage: 65-100-325 MG
     Dates: start: 20050210
  49. METOCLOPRAMIDE. [Concomitant]
     Active Substance: METOCLOPRAMIDE
     Dosage: 5.0MG UNKNOWN
     Dates: start: 20140105
  50. PREDNISONE. [Concomitant]
     Active Substance: PREDNISONE
     Dates: start: 2005
  51. PRAVACHOL [Concomitant]
     Active Substance: PRAVASTATIN SODIUM
     Route: 048
     Dates: start: 20040708
  52. ALTACE [Concomitant]
     Active Substance: RAMIPRIL
     Dosage: 10.0MG UNKNOWN
     Dates: start: 20030106
  53. NORVASC [Concomitant]
     Active Substance: AMLODIPINE BESYLATE
     Route: 048
     Dates: start: 20040708
  54. AMOXICILLIN. [Concomitant]
     Active Substance: AMOXICILLIN
     Dosage: 500.0MG UNKNOWN
     Dates: start: 20040721
  55. SENSIPAR [Concomitant]
     Active Substance: CINACALCET HYDROCHLORIDE
     Dosage: 30.0MG UNKNOWN
     Dates: start: 20090227
  56. MIDODRINE HCL [Concomitant]
     Active Substance: MIDODRINE HYDROCHLORIDE
     Dosage: 10.0MG UNKNOWN
     Dates: start: 20150518
  57. PREVACID [Concomitant]
     Active Substance: LANSOPRAZOLE
     Dosage: 30.0MG UNKNOWN
     Dates: start: 20070609
  58. FERROUS SULFATE. [Concomitant]
     Active Substance: FERROUS SULFATE
     Route: 048
     Dates: start: 20090221
  59. HYDRALAZINE [Concomitant]
     Active Substance: HYDRALAZINE HYDROCHLORIDE
     Route: 048
     Dates: start: 20090221

REACTIONS (16)
  - Cardiomyopathy [Unknown]
  - Type 1 diabetes mellitus [Unknown]
  - Emotional distress [Unknown]
  - Myocardial infarction [Unknown]
  - Cardiac failure congestive [Unknown]
  - Coronary artery disease [Unknown]
  - Ischaemic stroke [Unknown]
  - Cardiovascular disorder [Unknown]
  - Blood triglycerides increased [Unknown]
  - Cardiomegaly [Unknown]
  - Type 2 diabetes mellitus [Not Recovered/Not Resolved]
  - Angina unstable [Unknown]
  - Arrhythmia [Unknown]
  - Gestational diabetes [Unknown]
  - Hypertension [Not Recovered/Not Resolved]
  - Obesity [Unknown]

NARRATIVE: CASE EVENT DATE: 200703
